FAERS Safety Report 10280433 (Version 3)
Quarter: 2014Q3

REPORT INFORMATION
  Report Type: Spontaneous
  Country: BR (occurrence: BR)
  Receive Date: 20140707
  Receipt Date: 20140826
  Transmission Date: 20150326
  Serious: Yes (Other)
  Sender: FDA-Public Use
  Company Number: BR-PFIZER INC-2014181319

PATIENT
  Age: 74 Year
  Sex: Male

DRUGS (1)
  1. DETRUSITOL LA [Suspect]
     Active Substance: TOLTERODINE TARTRATE
     Dosage: UNK

REACTIONS (4)
  - Weight increased [Unknown]
  - Drug prescribing error [Unknown]
  - Kidney enlargement [Unknown]
  - Swelling [Unknown]
